FAERS Safety Report 8508718-6 (Version None)
Quarter: 2012Q3

REPORT INFORMATION
  Report Type: 
  Country: None (occurrence: None)
  Receive Date: 20120713
  Receipt Date: 20120709
  Transmission Date: 20120928
  Serious: No
  Sender: FDA-Public Use
  Company Number: US-PFIZER INC-2012164330

PATIENT
  Sex: Male
  Weight: 89.796 kg

DRUGS (3)
  1. ASPIRIN [Concomitant]
     Dosage: UNK
  2. TOVIAZ [Suspect]
     Indication: HYPERTONIC BLADDER
     Dosage: 8 MG, 1X/DAY
     Route: 048
     Dates: start: 20120601
  3. LIPITOR [Concomitant]
     Dosage: UNK

REACTIONS (1)
  - DRY MOUTH [None]
